FAERS Safety Report 7299649-0 (Version None)
Quarter: 2011Q1

REPORT INFORMATION
  Report Type: 
  Country: None (occurrence: None)
  Receive Date: 20110208
  Receipt Date: 20110127
  Transmission Date: 20110831
  Serious: Yes (Disabling)
  Sender: FDA-Public Use
  Company Number: TCI2010A00146

PATIENT
  Age: 68 Year
  Sex: Male

DRUGS (2)
  1. ACTOS [Suspect]
     Indication: TYPE 2 DIABETES MELLITUS
     Dosage: 15 MG (15 MG, 1 D) PER ORAL
     Route: 048
     Dates: start: 20091224, end: 20100113
  2. SULFONAMIDES, UREA DERIVATIVES [Concomitant]

REACTIONS (2)
  - URINARY RETENTION [None]
  - RENAL FAILURE [None]
